FAERS Safety Report 21154545 (Version 2)
Quarter: 2022Q3

REPORT INFORMATION
  Report Type: Spontaneous
  Country: FR (occurrence: FR)
  Receive Date: 20220801
  Receipt Date: 20220818
  Transmission Date: 20221027
  Serious: Yes (Death, Other)
  Sender: FDA-Public Use
  Company Number: FR-AFSSAPS-AN20221673

PATIENT
  Age: 53 Year
  Sex: Male

DRUGS (3)
  1. MAGNESIUM [Interacting]
     Active Substance: MAGNESIUM
     Indication: Prophylaxis against dehydration
     Dosage: 0.8 GRAM, ONCE A DAY
     Route: 042
     Dates: start: 20220704, end: 20220704
  2. NICARDIPINE [Interacting]
     Active Substance: NICARDIPINE
     Indication: Hypertension
     Dosage: 20 MILLIGRAM, 1 TOTAL
     Route: 048
     Dates: start: 20220704, end: 20220704
  3. NIMODIPINE [Interacting]
     Active Substance: NIMODIPINE
     Indication: Hypertension
     Dosage: 60 MILLIGRAM, 1 TOTAL
     Route: 048
     Dates: start: 20220704, end: 20220704

REACTIONS (3)
  - Cardiovascular insufficiency [Fatal]
  - Drug interaction [Fatal]
  - Hypotension [Fatal]

NARRATIVE: CASE EVENT DATE: 20220704
